FAERS Safety Report 12847777 (Version 1)
Quarter: 2016Q4

REPORT INFORMATION
  Report Type: Spontaneous
  Country: US (occurrence: US)
  Receive Date: 20161014
  Receipt Date: 20161014
  Transmission Date: 20170207
  Serious: No
  Sender: FDA-Public Use
  Company Number: US-JNJFOC-20160918880

PATIENT
  Age: 6 Year
  Sex: Female
  Weight: 16.78 kg

DRUGS (1)
  1. CHILDRENS TYLENOL [Suspect]
     Active Substance: ACETAMINOPHEN
     Indication: PYREXIA
     Dosage: 2 TEASPOONS, EVERY 4-6 HOURS
     Route: 048
     Dates: start: 20160830, end: 20160901

REACTIONS (2)
  - Skin discolouration [Not Recovered/Not Resolved]
  - Urticaria [Recovered/Resolved]

NARRATIVE: CASE EVENT DATE: 20160831
